FAERS Safety Report 4766957-4 (Version None)
Quarter: 2005Q3

REPORT INFORMATION
  Report Type: 
  Country: None (occurrence: None)
  Receive Date: 20050908
  Receipt Date: 20050822
  Transmission Date: 20060218
  Serious: Yes (Other)
  Sender: FDA-Public Use
  Company Number: SE-2005-017400

PATIENT
  Sex: Female

DRUGS (1)
  1. LEVONORGESTREL [Suspect]
     Indication: CONTRACEPTION
     Dosage: 20 UG/DAY, CONT, INTRA-UTERINE
     Route: 015

REACTIONS (5)
  - ABDOMINAL SYMPTOM [None]
  - MENSTRUATION IRREGULAR [None]
  - MIGRAINE [None]
  - MOOD ALTERED [None]
  - VISUAL DISTURBANCE [None]
